FAERS Safety Report 4592821-X (Version None)
Quarter: 2005Q1

REPORT INFORMATION
  Report Type: 
  Country: None (occurrence: None)
  Receive Date: 20050228
  Receipt Date: 20041206
  Transmission Date: 20050727
  Serious: Yes (Other)
  Sender: FDA-Public Use
  Company Number: BR-GLAXOSMITHKLINE-A0536231A

PATIENT
  Age: 35 Year
  Sex: Female
  Weight: 50 kg

DRUGS (4)
  1. NIQUITIN 21MG [Suspect]
     Route: 062
     Dates: start: 20041202, end: 20041206
  2. TRIPTANOL [Concomitant]
     Dosage: 25MG PER DAY
     Route: 048
     Dates: end: 20041201
  3. DIAZEPAM [Concomitant]
     Dates: end: 20041201
  4. ARCOXIA [Concomitant]
     Route: 048
     Dates: end: 20041201

REACTIONS (5)
  - ANXIETY [None]
  - DIZZINESS [None]
  - HALLUCINATION [None]
  - INTENTIONAL MISUSE [None]
  - VOMITING [None]
